FAERS Safety Report 25809133 (Version 1)
Quarter: 2025Q3

REPORT INFORMATION
  Report Type: Other
  Country: CA (occurrence: CA)
  Receive Date: 20250916
  Receipt Date: 20250916
  Transmission Date: 20251021
  Serious: Yes (Hospitalization)
  Sender: ALNYLAM PHARMACEUTICALS
  Company Number: CA-ALNYLAM PHARMACEUTICALS, INC.-ALN-2025-005554

PATIENT

DRUGS (1)
  1. AMVUTTRA [Suspect]
     Active Substance: VUTRISIRAN
     Indication: Hereditary neuropathic amyloidosis
     Dosage: 25 MILLIGRAM, Q3M
     Route: 058

REACTIONS (3)
  - Electric shock sensation [Not Recovered/Not Resolved]
  - Muscle spasms [Not Recovered/Not Resolved]
  - Peripheral vascular disorder [Not Recovered/Not Resolved]
